FAERS Safety Report 5269747-1 (Version None)
Quarter: 2007Q1

REPORT INFORMATION
  Report Type: 
  Country: None (occurrence: None)
  Receive Date: 20070320
  Receipt Date: 20070308
  Transmission Date: 20070707
  Serious: Yes (Other)
  Sender: FDA-Public Use
  Company Number: BR-ROCHE-485021

PATIENT
  Age: 17 Year
  Sex: Male
  Weight: 66 kg

DRUGS (1)
  1. ISOTRETINOIN [Suspect]
     Indication: ACNE
     Route: 048
     Dates: start: 20070123

REACTIONS (3)
  - BRADYPHRENIA [None]
  - INSOMNIA [None]
  - PARANOIA [None]
